FAERS Safety Report 8213859-7 (Version None)
Quarter: 2012Q1

REPORT INFORMATION
  Report Type: 
  Country: None (occurrence: None)
  Receive Date: 20120316
  Receipt Date: 20120310
  Transmission Date: 20120608
  Serious: No
  Sender: FDA-Public Use
  Company Number: US-BIOGENIDEC-2012BI008774

PATIENT
  Age: 48 Year
  Sex: Female

DRUGS (1)
  1. TYSABRI [Suspect]
     Indication: MULTIPLE SCLEROSIS
     Route: 042
     Dates: start: 20120221

REACTIONS (8)
  - VOMITING [None]
  - SOMNOLENCE [None]
  - FATIGUE [None]
  - HEADACHE [None]
  - PYREXIA [None]
  - CHILLS [None]
  - CHEST PAIN [None]
  - NAUSEA [None]
